FAERS Safety Report 21733269 (Version 1)
Quarter: 2022Q4

REPORT INFORMATION
  Report Type: Other
  Country: AT (occurrence: AT)
  Receive Date: 20221215
  Receipt Date: 20221215
  Transmission Date: 20230112
  Serious: Yes (Other)
  Sender: FDA-Public Use
  Company Number: AT-CELLTRION INC.-2022AT020814

PATIENT

DRUGS (17)
  1. RITUXIMAB [Suspect]
     Active Substance: RITUXIMAB
     Indication: Diffuse large B-cell lymphoma
     Dosage: UNK
     Dates: start: 2017, end: 201801
  2. RITUXIMAB [Suspect]
     Active Substance: RITUXIMAB
     Dosage: UNK
     Dates: start: 200710, end: 200711
  3. RITUXIMAB [Suspect]
     Active Substance: RITUXIMAB
     Dosage: UNK
     Dates: start: 202103, end: 202106
  4. RITUXIMAB [Suspect]
     Active Substance: RITUXIMAB
     Dosage: UNK
     Dates: start: 202112, end: 202203
  5. CYTARABINE [Suspect]
     Active Substance: CYTARABINE
     Indication: Diffuse large B-cell lymphoma
     Dosage: UNK
     Dates: start: 202112, end: 202203
  6. CYCLOPHOSPHAMIDE [Suspect]
     Active Substance: CYCLOPHOSPHAMIDE
     Indication: Diffuse large B-cell lymphoma
     Dosage: UNK
     Dates: start: 202103, end: 202106
  7. CARBOPLATIN [Suspect]
     Active Substance: CARBOPLATIN
     Indication: Diffuse large B-cell lymphoma
     Dosage: UNK
     Dates: start: 202112, end: 202203
  8. PREDNISONE [Suspect]
     Active Substance: PREDNISONE
     Indication: Diffuse large B-cell lymphoma
     Dosage: UNK
     Dates: start: 202103, end: 202106
  9. TAFASITAMAB-CXIX [Suspect]
     Active Substance: TAFASITAMAB-CXIX
     Indication: Diffuse large B-cell lymphoma
     Dosage: UNK
     Dates: start: 202103, end: 202110
  10. VINCRISTINE [Suspect]
     Active Substance: VINCRISTINE
     Indication: Diffuse large B-cell lymphoma
     Dosage: UNK
     Dates: start: 202103, end: 202106
  11. LENALIDOMIDE [Suspect]
     Active Substance: LENALIDOMIDE
     Indication: Diffuse large B-cell lymphoma
     Dosage: UNK
     Dates: start: 202103, end: 202210
  12. GLANDOMED [Concomitant]
  13. ACETAMINOPHEN [Concomitant]
     Active Substance: ACETAMINOPHEN
  14. AMLODIPINE [Concomitant]
     Active Substance: AMLODIPINE BESYLATE
  15. SULFAMETHOXAZOLE\TRIMETHOPRIM [Concomitant]
     Active Substance: SULFAMETHOXAZOLE\TRIMETHOPRIM
  16. ZOFRAN [Concomitant]
     Active Substance: ONDANSETRON HYDROCHLORIDE
  17. Paspertin [Concomitant]

REACTIONS (3)
  - Diffuse large B-cell lymphoma [Unknown]
  - Blood lactate dehydrogenase increased [Unknown]
  - Disease progression [Unknown]
